FAERS Safety Report 16441403 (Version 1)
Quarter: 2019Q2

REPORT INFORMATION
  Report Type: Spontaneous
  Country: CN (occurrence: CN)
  Receive Date: 20190617
  Receipt Date: 20190617
  Transmission Date: 20190711
  Serious: Yes (Other)
  Sender: FDA-Public Use
  Company Number: CN-ELI_LILLY_AND_COMPANY-CN201906002634

PATIENT
  Sex: Male

DRUGS (4)
  1. GEMCITABINE HYDROCHLORIDE. [Suspect]
     Active Substance: GEMCITABINE HYDROCHLORIDE
     Indication: CACHEXIA
     Dosage: 1 G, DAILY
     Route: 041
     Dates: start: 20190103, end: 20190109
  2. GEMCITABINE HYDROCHLORIDE. [Suspect]
     Active Substance: GEMCITABINE HYDROCHLORIDE
     Indication: PANCREATIC CARCINOMA
     Dosage: 200 MG, DAILY
     Route: 041
     Dates: start: 20190103, end: 20190103
  3. PACLITAXEL. [Suspect]
     Active Substance: PACLITAXEL
     Indication: PANCREATIC CARCINOMA
     Dosage: 160 MG, DAILY
     Route: 033
     Dates: start: 20190103, end: 20190103
  4. PACLITAXEL. [Suspect]
     Active Substance: PACLITAXEL
     Indication: CACHEXIA

REACTIONS (2)
  - Bone marrow failure [Recovered/Resolved]
  - Off label use [Unknown]

NARRATIVE: CASE EVENT DATE: 20190111
